FAERS Safety Report 16402835 (Version 2)
Quarter: 2019Q3

REPORT INFORMATION
  Report Type: Spontaneous
  Country: IT (occurrence: IT)
  Receive Date: 20190607
  Receipt Date: 20190711
  Transmission Date: 20191004
  Serious: Yes (Life-Threatening)
  Sender: FDA-Public Use
  Company Number: IT-ROCHE-2332606

PATIENT
  Age: 73 Year
  Sex: Male

DRUGS (15)
  1. BENDAMUSTINE [Suspect]
     Active Substance: BENDAMUSTINE
     Indication: B-CELL LYMPHOMA
     Dosage: MOST RECENT DOSE ON 25/JAN/2018
     Route: 042
     Dates: start: 20170906
  2. TAVOR (LORAZEPAM) [Concomitant]
     Active Substance: LORAZEPAM
     Route: 048
  3. RANITIDINE. [Concomitant]
     Active Substance: RANITIDINE
     Route: 048
  4. NICETILE [Concomitant]
     Active Substance: ACETYLCARNITINE HYDROCHLORIDE
     Route: 065
  5. VASEXTEN [Concomitant]
     Active Substance: BARNIDIPINE HYDROCHLORIDE
     Route: 048
  6. NORMIX [Concomitant]
     Active Substance: RIFAXIMIN
  7. BENDAMUSTINE [Suspect]
     Active Substance: BENDAMUSTINE
     Route: 065
     Dates: start: 201709
  8. DIBASE [Concomitant]
     Active Substance: CHOLECALCIFEROL
     Route: 048
  9. AVODART [Concomitant]
     Active Substance: DUTASTERIDE
     Route: 048
  10. MABTHERA [Suspect]
     Active Substance: RITUXIMAB
     Dosage: ON 23/NOV/2018, RECEIVED MOST RECENT DOSE OF RITUXIMAB.
     Route: 058
     Dates: start: 20171004
  11. PERMIXON [Concomitant]
     Active Substance: HERBALS\SAW PALMETTO
     Route: 048
  12. MELATONIN [Concomitant]
     Active Substance: MELATONIN
     Route: 048
  13. NORMIX [Concomitant]
     Active Substance: RIFAXIMIN
     Route: 048
  14. CARDIOASPIRIN [Concomitant]
     Active Substance: ASPIRIN
     Route: 048
  15. MABTHERA [Suspect]
     Active Substance: RITUXIMAB
     Indication: B-CELL LYMPHOMA
     Route: 058
     Dates: start: 201709

REACTIONS (1)
  - Progressive multifocal leukoencephalopathy [Not Recovered/Not Resolved]

NARRATIVE: CASE EVENT DATE: 20190123
